FAERS Safety Report 4429958-1 (Version None)
Quarter: 2004Q3

REPORT INFORMATION
  Report Type: 
  Country: None (occurrence: None)
  Receive Date: 20040817
  Receipt Date: 20040802
  Transmission Date: 20050211
  Serious: Yes (Death)
  Sender: FDA-Public Use
  Company Number: 200474

PATIENT
  Age: 44 Year
  Sex: Female

DRUGS (5)
  1. AVONEX [Suspect]
     Indication: MULTIPLE SCLEROSIS
     Dosage: 30 MCG QW IM
     Route: 030
     Dates: start: 20040406, end: 20040617
  2. INSULIN [Concomitant]
  3. EFFEXOR [Concomitant]
  4. SYNTHROID [Concomitant]
  5. DITROPAN [Concomitant]

REACTIONS (3)
  - ARRHYTHMIA [None]
  - CARDIAC ARREST [None]
  - SUDDEN CARDIAC DEATH [None]
